FAERS Safety Report 9598624 (Version 1)
Quarter: 2013Q4

REPORT INFORMATION
  Report Type: Spontaneous
  Country: US (occurrence: US)
  Receive Date: 20131004
  Receipt Date: 20131004
  Transmission Date: 20140711
  Serious: No
  Sender: FDA-Public Use
  Company Number: US-AMGEN-USASP2013024943

PATIENT
  Age: 53 Year
  Sex: Male
  Weight: 175 kg

DRUGS (8)
  1. ENBREL [Suspect]
     Indication: PRODUCT USED FOR UNKNOWN INDICATION
     Dosage: 50 MG, QWK
     Route: 058
  2. PREDNISONE [Concomitant]
     Dosage: 5 MG, UNK
  3. DICLOFENAC [Concomitant]
     Dosage: 75 MG, EC
  4. LISINOPRIL [Concomitant]
     Dosage: 5 MG, UNK
  5. POTASSIUM [Concomitant]
     Dosage: 75 MG, UNK
  6. MAGNESIUM [Concomitant]
     Dosage: 300 MG, UNK
  7. AMITRIPTYLINE [Concomitant]
     Dosage: 10 MG, UNK
  8. VALPROIC ACID [Concomitant]
     Dosage: 250 MG, UNK

REACTIONS (2)
  - Constipation [Unknown]
  - Diarrhoea [Unknown]
